FAERS Safety Report 8936101 (Version 1)
Quarter: 2012Q4

REPORT INFORMATION
  Report Type: Spontaneous
  Country: US (occurrence: None)
  Receive Date: 20121128
  Receipt Date: 20121128
  Transmission Date: 20130627
  Serious: No
  Sender: FDA-Public Use
  Company Number: None

PATIENT
  Age: 62 Year
  Sex: Male
  Weight: 80 kg

DRUGS (38)
  1. CRESTOR [Suspect]
     Dosage: 40 mg/po/pg (single dose)
     Dates: start: 20121008
  2. CRESTOR [Suspect]
     Dosage: 10-20mg oral/pg OD
     Route: 048
     Dates: start: 20121009, end: 20121017
  3. CALCIUM CARBONATE [Concomitant]
  4. CALCIUM GLUCONATE [Concomitant]
  5. DOCUSATE SODIUM [Concomitant]
  6. FAMOTIDINE [Concomitant]
  7. FUROSEMIDE [Concomitant]
  8. HEPARIN [Concomitant]
  9. LEVOTHYROXINE SODIUM [Concomitant]
  10. MUPIROCIN OINTMENT [Concomitant]
  11. NYSTATIN [Concomitant]
  12. ZOLPIDEM TATRATE [Concomitant]
  13. INSULIN [Concomitant]
  14. IPRATROPIUM/ALBUTEROL [Concomitant]
  15. MAGNESIUM OXIDE [Concomitant]
  16. FLU VACCINE [Concomitant]
  17. ALBUMIN [Concomitant]
  18. POLYETHYLENE GLYCOL [Concomitant]
  19. AZITHROMYCIN [Concomitant]
  20. CALCIUM CHLORIDE [Concomitant]
  21. CHLORHEXIDINE [Concomitant]
  22. CEFRIAXONE [Concomitant]
  23. HYDROCORTISONE [Concomitant]
  24. NACL [Concomitant]
  25. OMEPRAZOLE [Concomitant]
  26. PIPERACIL/TAZOBACTAM [Concomitant]
  27. VANCOMYCIN [Concomitant]
  28. ACETAMINOPHEN [Concomitant]
  29. AMIODARONE [Concomitant]
  30. FENTANYL [Concomitant]
  31. MIDAZOLAM [Concomitant]
  32. NOREPINEPHRINE [Concomitant]
  33. VASOPRESSIN [Concomitant]
  34. DILTIAZEM [Concomitant]
  35. FOLIC ACID [Concomitant]
  36. DSW SOLUTION [Concomitant]
  37. D5W/NACL SOLUTION [Concomitant]
  38. D50 SOLUTION [Concomitant]

REACTIONS (2)
  - Blood creatine phosphokinase increased [None]
  - Aspartate aminotransferase increased [None]
